FAERS Safety Report 9154157 (Version 4)
Quarter: 2013Q2

REPORT INFORMATION
  Report Type: Spontaneous
  Country: DZ (occurrence: DZ)
  Receive Date: 20130311
  Receipt Date: 20130514
  Transmission Date: 20140414
  Serious: Yes (Death)
  Sender: FDA-Public Use
  Company Number: DZ-PFIZER INC-2013079247

PATIENT
  Age: 5 Year
  Sex: Male

DRUGS (5)
  1. VFEND [Suspect]
     Indication: FUNGAL INFECTION
     Dosage: 9 MG/KG, 2X/DAY
     Dates: start: 20130218, end: 20130218
  2. VFEND [Suspect]
     Dosage: 8 MG/KG, 2X/DAY
     Dates: start: 20130219, end: 20130223
  3. VFEND [Suspect]
     Indication: FUNGAL INFECTION
     Dosage: 200 MG, 2X/DAY
     Route: 048
     Dates: start: 20130224, end: 20130227
  4. TIENAM [Concomitant]
  5. TARGOCID [Concomitant]

REACTIONS (1)
  - Septic shock [Fatal]
